FAERS Safety Report 24050964 (Version 1)
Quarter: 2024Q3

REPORT INFORMATION
  Report Type: Spontaneous
  Country: ES (occurrence: None)
  Receive Date: 20240704
  Receipt Date: 20240704
  Transmission Date: 20241017
  Serious: Yes (Life-Threatening)
  Sender: ASTRAZENECA
  Company Number: 2024A153527

PATIENT
  Age: 50 Year
  Sex: Female

DRUGS (5)
  1. QUETIAPINE [Suspect]
     Active Substance: QUETIAPINE
     Indication: Suicide attempt
     Route: 048
     Dates: start: 20240616, end: 20240616
  2. ALPRAZOLAM [Suspect]
     Active Substance: ALPRAZOLAM
     Indication: Suicide attempt
     Dosage: 12.5 MG. 25 MG EFG TABLETS, 30 TABLETS
     Route: 048
     Dates: start: 20240616, end: 20240616
  3. ALPRAZOLAM [Suspect]
     Active Substance: ALPRAZOLAM
     Indication: Suicide attempt
     Dosage: 25 MG EFG TABLETS, 30 TABLETS
     Route: 048
     Dates: start: 20240616, end: 20240616
  4. TRAZODONE HYDROCHLORIDE [Suspect]
     Active Substance: TRAZODONE HYDROCHLORIDE
     Dosage: 1100 MG. TABLETS COATED WITH EFG FILM, 60 TABLETS
     Route: 048
     Dates: start: 20240616, end: 20240616
  5. WINE [Suspect]
     Active Substance: WINE
     Dosage: 1/2 BOTTLE OF WINE

REACTIONS (2)
  - Intentional overdose [Recovering/Resolving]
  - Somnolence [Recovering/Resolving]

NARRATIVE: CASE EVENT DATE: 20240616
